FAERS Safety Report 9293084 (Version 1)
Quarter: 2013Q2

REPORT INFORMATION
  Report Type: Spontaneous
  Country: US (occurrence: None)
  Receive Date: 20130515
  Receipt Date: 20130515
  Transmission Date: 20140414
  Serious: No
  Sender: FDA-Public Use
  Company Number: None

PATIENT
  Age: 76 Year
  Sex: Female

DRUGS (1)
  1. CIMZIA [Suspect]
     Dosage: 200 MG/ML SC INJECT 2 SYRINGES (400 MG) SUBCUTANEOUSLY EVERY FOUR WEEKS
     Route: 058

REACTIONS (1)
  - Alopecia [None]
